FAERS Safety Report 6059026-7 (Version None)
Quarter: 2009Q1

REPORT INFORMATION
  Report Type: 
  Country: None (occurrence: None)
  Receive Date: 20090128
  Receipt Date: 20090107
  Transmission Date: 20090719
  Serious: Yes (Other)
  Sender: FDA-Public Use
  Company Number: 2009US000043

PATIENT
  Age: 47 Year
  Sex: Female
  Weight: 69.8 kg

DRUGS (1)
  1. LEXISCAN [Suspect]
     Indication: SCAN MYOCARDIAL PERFUSION
     Dosage: UNK, UNKNOWN/D, UNKNOWN
     Dates: start: 20090105, end: 20090105

REACTIONS (6)
  - ABDOMINAL PAIN [None]
  - BLOOD PRESSURE INCREASED [None]
  - FACIAL PALSY [None]
  - FLUSHING [None]
  - HYPOAESTHESIA [None]
  - MUSCULAR WEAKNESS [None]
